FAERS Safety Report 7058290-5 (Version None)
Quarter: 2010Q4

REPORT INFORMATION
  Report Type: 
  Country: None (occurrence: None)
  Receive Date: 20101022
  Receipt Date: 20101011
  Transmission Date: 20110411
  Serious: Yes (Death)
  Sender: FDA-Public Use
  Company Number: US-ELI_LILLY_AND_COMPANY-US201010002493

PATIENT
  Age: 35 Year
  Sex: Female

DRUGS (4)
  1. ZYPREXA [Suspect]
     Indication: BIPOLAR I DISORDER
     Dosage: 20 MG, UNK
  2. LORTAB [Concomitant]
     Indication: PAIN
     Dosage: 10 D/F, UNKNOWN
  3. XANAX [Concomitant]
     Indication: ANXIETY
     Dosage: 2 D/F, UNKNOWN
  4. DEPAKOTE [Concomitant]
     Indication: BIPOLAR DISORDER
     Dosage: 500 D/F, UNKNOWN

REACTIONS (1)
  - DEATH [None]
